FAERS Safety Report 17873780 (Version 3)
Quarter: 2020Q2

REPORT INFORMATION
  Report Type: Report from Study
  Country: BR (occurrence: BR)
  Receive Date: 20200609
  Receipt Date: 20200618
  Transmission Date: 20200714
  Serious: Yes (Other)
  Sender: FDA-Public Use
  Company Number: BR-ROCHE-2613570

PATIENT
  Sex: Female

DRUGS (2)
  1. PERJETA [Suspect]
     Active Substance: PERTUZUMAB
     Indication: HER2 POSITIVE BREAST CANCER
     Route: 065
  2. HERCEPTIN [Suspect]
     Active Substance: TRASTUZUMAB
     Indication: HER2 POSITIVE BREAST CANCER
     Route: 065

REACTIONS (14)
  - Mood swings [Unknown]
  - Fatigue [Unknown]
  - Swelling [Unknown]
  - Platelet count decreased [Unknown]
  - Product dose omission [Unknown]
  - Ageusia [Unknown]
  - Alopecia [Unknown]
  - Pain in extremity [Unknown]
  - White blood cell count decreased [Unknown]
  - Liver disorder [Unknown]
  - Neuralgia [Unknown]
  - Thermal burn [Unknown]
  - Vascular rupture [Unknown]
  - Vein disorder [Unknown]
